FAERS Safety Report 7263746-6 (Version None)
Quarter: 2011Q1

REPORT INFORMATION
  Report Type: 
  Country: None (occurrence: None)
  Receive Date: 20110130
  Receipt Date: 20101028
  Transmission Date: 20110831
  Serious: No
  Sender: FDA-Public Use
  Company Number: US-ABBOTT-10P-163-0682315-00

PATIENT
  Sex: Female
  Weight: 56.75 kg

DRUGS (5)
  1. METHOTREXATE [Concomitant]
     Indication: PRODUCT USED FOR UNKNOWN INDICATION
     Dates: start: 19950101
  2. HUMIRA [Suspect]
     Indication: JUVENILE ARTHRITIS
     Dates: start: 20100701, end: 20101007
  3. NAPROSYN [Concomitant]
     Indication: PRODUCT USED FOR UNKNOWN INDICATION
  4. ENBREL [Concomitant]
     Indication: JUVENILE ARTHRITIS
     Dates: start: 19990101
  5. ENBREL [Concomitant]

REACTIONS (2)
  - RHEUMATOID ARTHRITIS [None]
  - DRUG INEFFECTIVE [None]
